FAERS Safety Report 8779353 (Version 2)
Quarter: 2012Q4

REPORT INFORMATION
  Report Type: Report from Study
  Country: US (occurrence: US)
  Receive Date: 20120911
  Receipt Date: 20120911
  Transmission Date: 20130627
  Serious: Yes (Life-Threatening, Hospitalization)
  Sender: FDA-Public Use
  Company Number: US-009507513-2010SP061885

PATIENT

DRUGS (9)
  1. TEMODAR [Suspect]
     Indication: OVARIAN CANCER
     Dosage: 150 mg/m2, UNK
     Route: 048
     Dates: start: 20101012, end: 20101016
  2. DOXORUBICIN HYDROCHLORIDE [Suspect]
     Indication: OVARIAN CANCER
     Dosage: 90 mg, UNK
     Route: 042
     Dates: start: 20100803, end: 20100803
  3. DOXORUBICIN HYDROCHLORIDE [Suspect]
     Dosage: 72 mg, UNK
     Route: 042
     Dates: start: 20100831, end: 20100831
  4. VELIPARIB [Suspect]
     Indication: OVARIAN CANCER
     Dosage: 40 mg, UNK
     Route: 048
     Dates: start: 20101012, end: 20101018
  5. LEVOTHYROXINE SODIUM [Concomitant]
     Indication: HYPOTHYROIDISM
     Dosage: 100 mg, QD
     Dates: start: 20090819
  6. CANDESARTAN CILEXETIL [Concomitant]
     Indication: HYPERTENSION
     Dosage: 16 mg, QD
     Route: 065
     Dates: start: 20090819
  7. PYRIDOXINE HYDROCHLORIDE [Concomitant]
     Dosage: 1 IN 1 DAY, GENERAL HEALTH
     Route: 065
     Dates: start: 20090819
  8. DOCUSATE SODIUM [Concomitant]
     Indication: CONSTIPATION
     Dosage: 100 mg, QD
     Route: 065
     Dates: start: 20090930
  9. SULFAMETHOXAZOLE AND TRIMETHOPRIM [Concomitant]
     Indication: URINARY TRACT INFECTION
     Dosage: 500 mg, BID
     Route: 065
     Dates: start: 20101022, end: 20101029

REACTIONS (6)
  - Rectal haemorrhage [Recovered/Resolved]
  - Febrile neutropenia [Recovered/Resolved]
  - Leukopenia [Recovered/Resolved]
  - Thrombocytopenia [Recovered/Resolved]
  - Off label use [Unknown]
  - Bacteraemia [None]
